FAERS Safety Report 21972730 (Version 1)
Quarter: 2023Q1

REPORT INFORMATION
  Report Type: Spontaneous
  Country: US (occurrence: US)
  Receive Date: 20230209
  Receipt Date: 20230209
  Transmission Date: 20230418
  Serious: No
  Sender: FDA-Public Use
  Company Number: US-PFIZER INC-PV202300024857

PATIENT
  Sex: Female

DRUGS (1)
  1. PHENELZINE SULFATE [Suspect]
     Active Substance: PHENELZINE SULFATE
     Dosage: UNK

REACTIONS (2)
  - Hypersensitivity [Unknown]
  - Urticaria [Unknown]
